FAERS Safety Report 9280958 (Version 1)
Quarter: 2013Q2

REPORT INFORMATION
  Report Type: Report from Study
  Country: US (occurrence: US)
  Receive Date: 20130509
  Receipt Date: 20130509
  Transmission Date: 20140414
  Serious: Yes (Other)
  Sender: FDA-Public Use
  Company Number: US-ABBOTT-13P-163-1084853-00

PATIENT
  Sex: Female

DRUGS (2)
  1. CREON [Suspect]
     Indication: PANCREATIC INSUFFICIENCY
  2. CREON [Suspect]
     Indication: PANCREATITIS CHRONIC

REACTIONS (6)
  - Surgery [Unknown]
  - Drug ineffective [Unknown]
  - Drug administration error [Unknown]
  - Abdominal distension [Unknown]
  - Abdominal pain [Unknown]
  - Frequent bowel movements [Unknown]
